APPROVED DRUG PRODUCT: SULFABID
Active Ingredient: SULFAPHENAZOLE
Strength: 500MG
Dosage Form/Route: TABLET;ORAL
Application: N013092 | Product #002
Applicant: PURDUE FREDERICK CO
Approved: Approved Prior to Jan 1, 1982 | RLD: No | RS: No | Type: DISCN